FAERS Safety Report 6437701-X (Version None)
Quarter: 2009Q4

REPORT INFORMATION
  Report Type: 
  Country: None (occurrence: None)
  Receive Date: 20091112
  Receipt Date: 20091102
  Transmission Date: 20100525
  Serious: Yes (Hospitalization, Other)
  Sender: FDA-Public Use
  Company Number: JP-PFIZER INC-2009286353

PATIENT
  Age: 74 Year
  Sex: Female

DRUGS (11)
  1. LIPITOR [Suspect]
     Indication: HYPERLIPIDAEMIA
     Dosage: 10 MG, 1X/DAY
     Route: 048
     Dates: start: 20070101, end: 20091014
  2. LASIX [Concomitant]
     Route: 048
     Dates: end: 20091014
  3. TEGRETOL [Concomitant]
     Route: 048
     Dates: end: 20091014
  4. ADALAT [Concomitant]
     Route: 048
     Dates: end: 20091014
  5. DISOPYRAMIDE [Concomitant]
     Dosage: UNK
     Route: 048
  6. CERCINE [Concomitant]
     Dosage: UNK
     Route: 048
  7. CARTEOLOL HYDROCHLORIDE [Concomitant]
     Dosage: UNK
     Route: 048
  8. PURSENNID [Concomitant]
     Dosage: UNK
     Route: 048
  9. LUVOX [Concomitant]
     Dosage: UNK
     Route: 048
  10. GASTER [Concomitant]
     Dosage: UNK
     Route: 048
  11. ROHYPNOL [Concomitant]
     Dosage: UNK
     Route: 048

REACTIONS (3)
  - PYELONEPHRITIS [None]
  - RHABDOMYOLYSIS [None]
  - URINE COLOUR ABNORMAL [None]
